FAERS Safety Report 12254893 (Version 1)
Quarter: 2016Q2

REPORT INFORMATION
  Report Type: Spontaneous
  Country: US (occurrence: US)
  Receive Date: 20160411
  Receipt Date: 20160411
  Transmission Date: 20160815
  Serious: No
  Sender: FDA-Public Use
  Company Number: US-PRESTIUM-2015RN000014

PATIENT

DRUGS (1)
  1. VUSION [Suspect]
     Active Substance: MICONAZOLE NITRATE\PETROLATUM\ZINC OXIDE
     Indication: DERMATITIS
     Dosage: UNK, BID
     Route: 061
     Dates: start: 201503

REACTIONS (2)
  - Application site pain [Not Recovered/Not Resolved]
  - Off label use [Unknown]

NARRATIVE: CASE EVENT DATE: 201503
